FAERS Safety Report 19778262 (Version 2)
Quarter: 2021Q3

REPORT INFORMATION
  Report Type: Spontaneous
  Country: JP (occurrence: JP)
  Receive Date: 20210902
  Receipt Date: 20210917
  Transmission Date: 20211014
  Serious: Yes (Death, Other)
  Sender: FDA-Public Use
  Company Number: JP-GLAXOSMITHKLINE-JP2021182728

PATIENT
  Sex: Male
  Weight: 71.3 kg

DRUGS (13)
  1. ALFAROL CAPSULE [Concomitant]
     Dosage: 0.25 ?G
  2. AMENALIEF [Concomitant]
     Active Substance: AMENAMEVIR
     Indication: PAIN
     Dosage: UNK
  3. ARTIST TABLETS [Concomitant]
     Active Substance: CARVEDILOL
     Dosage: 2.5 MG/DAY
  4. CALTAN OD [Concomitant]
     Dosage: 1000 MG/DAY
  5. VALTREX [Suspect]
     Active Substance: VALACYCLOVIR HYDROCHLORIDE
     Indication: PAIN
  6. BAYASPIRIN TABLETS [Concomitant]
     Dosage: 100 MG/DAY
  7. GASTER D TABLETS [Concomitant]
     Dosage: 10 MG/DAY
  8. VALTREX [Suspect]
     Active Substance: VALACYCLOVIR HYDROCHLORIDE
     Indication: HERPES ZOSTER
     Dosage: 500 MG
     Route: 048
  9. MIYA?BM [Concomitant]
     Active Substance: CLOSTRIDIUM BUTYRICUM SPORES STRAIN M-55
     Dosage: 3 DF/DAY
  10. FOSRENOL OD TABLET [Concomitant]
     Dosage: 1000 MG/DAY
  11. KAYEXALATE DRYSYRUP [Concomitant]
     Dosage: 3 DF/DAY
  12. RISUMIC [Concomitant]
     Active Substance: AMEZINIUM METILSULFATE
     Dosage: 10 MG/DAY
  13. LASIX [Concomitant]
     Active Substance: FUROSEMIDE
     Dosage: 80 MG/DAY

REACTIONS (2)
  - Pain [Unknown]
  - Pneumonia [Fatal]
